FAERS Safety Report 4841102-5 (Version None)
Quarter: 2005Q4

REPORT INFORMATION
  Report Type: 
  Country: None (occurrence: None)
  Receive Date: 20051130
  Receipt Date: 20050927
  Transmission Date: 20060501
  Serious: No
  Sender: FDA-Public Use
  Company Number: US-BRISTOL-MYERS SQUIBB COMPANY-13124128

PATIENT
  Age: 5 Decade
  Sex: Male

DRUGS (4)
  1. ABILIFY [Suspect]
     Route: 048
  2. SEROQUEL [Concomitant]
  3. BUSPAR [Concomitant]
  4. SINEMET [Concomitant]

REACTIONS (1)
  - PARKINSONISM [None]
